FAERS Safety Report 19404982 (Version 1)
Quarter: 2021Q2

REPORT INFORMATION
  Report Type: Spontaneous
  Country: DE (occurrence: DE)
  Receive Date: 20210611
  Receipt Date: 20210611
  Transmission Date: 20210717
  Serious: Yes (Hospitalization)
  Sender: FDA-Public Use
  Company Number: DE-TEVA-2021-DE-1920545

PATIENT
  Age: 68 Year
  Sex: Female

DRUGS (14)
  1. FOLINSAURE [Suspect]
     Active Substance: LEUCOVORIN
     Dosage: 800 MG
     Route: 042
  2. CANDESARTAN. [Concomitant]
     Active Substance: CANDESARTAN
     Dosage: 16 MILLIGRAM DAILY; 1?0?1?0
  3. METOPROLOLSUCCINAT [Concomitant]
     Active Substance: METOPROLOL SUCCINATE
     Dosage: 47.5 MILLIGRAM DAILY; 23.75 MG, 1?0?1?0
  4. BISACODYL. [Concomitant]
     Active Substance: BISACODYL
     Dosage: 10 MG, IF NECESSARY
  5. EUTHYROX [Concomitant]
     Active Substance: LEVOTHYROXINE SODIUM
     Dosage: 150 MICROGRAM DAILY; 1?0?0?0
  6. ATORVASTATIN [Concomitant]
     Active Substance: ATORVASTATIN
     Dosage: 20 MILLIGRAM DAILY; 0?0?1?0
  7. HCT [Concomitant]
     Active Substance: HYDROCHLOROTHIAZIDE
     Dosage: .5 DOSAGE FORMS DAILY; 25 MG, 0.5?0?0?0
  8. OXALIPLATIN. [Suspect]
     Active Substance: OXALIPLATIN
     Dosage: 170 MG
     Route: 042
  9. KALIUMCITRAT [Concomitant]
     Active Substance: POTASSIUM CITRATE
     Dosage: 2 DOSAGE FORMS DAILY; 1?0?1?0
  10. METAMIZOL [Concomitant]
     Active Substance: METAMIZOLE SODIUM
     Dosage: 160 GTT DAILY; 1?1?1?1, DROPS
  11. 5?FU [Suspect]
     Active Substance: FLUOROURACIL
     Dosage: 4800 MG, 48 H PUMP
     Route: 042
  12. 5?FU [Suspect]
     Active Substance: FLUOROURACIL
     Dosage: 800 MG, BOLUS
     Route: 042
  13. IRINOTECAN [Suspect]
     Active Substance: IRINOTECAN
     Dosage: 360 MG
     Route: 042
  14. OXAZEPAM. [Concomitant]
     Active Substance: OXAZEPAM
     Dosage: 10 MG, IF NECESSARY

REACTIONS (4)
  - Vomiting [Unknown]
  - Flatulence [Unknown]
  - Nausea [Unknown]
  - Abdominal pain [Unknown]
